FAERS Safety Report 5299818-5 (Version None)
Quarter: 2007Q2

REPORT INFORMATION
  Report Type: 
  Country: None (occurrence: None)
  Receive Date: 20070417
  Receipt Date: 20070406
  Transmission Date: 20071010
  Serious: Yes (Other)
  Sender: FDA-Public Use
  Company Number: US-PFIZER INC-2007028955

PATIENT
  Sex: Male
  Weight: 65.8 kg

DRUGS (7)
  1. DILANTIN [Suspect]
     Indication: EPILEPSY
     Route: 048
  2. CALCIUM WITH VITAMIN D [Interacting]
     Indication: OSTEOPOROSIS
  3. AMOXICILLIN [Concomitant]
  4. VITAMIN CAP [Concomitant]
  5. FOSAMAX [Concomitant]
  6. FELDENE [Concomitant]
  7. VESICARE [Concomitant]

REACTIONS (5)
  - BIOPSY [None]
  - DRUG INTERACTION [None]
  - DRY MOUTH [None]
  - NASAL DRYNESS [None]
  - TONGUE DRY [None]
